FAERS Safety Report 21824280 (Version 3)
Quarter: 2023Q1

REPORT INFORMATION
  Report Type: Spontaneous
  Country: ES (occurrence: ES)
  Receive Date: 20230105
  Receipt Date: 20230214
  Transmission Date: 20230418
  Serious: Yes (Other)
  Sender: FDA-Public Use
  Company Number: ES-ASPEN-GLO2022ES007426

PATIENT
  Age: 29 Year
  Sex: Male

DRUGS (16)
  1. BUSULFAN [Suspect]
     Active Substance: BUSULFAN
     Indication: Acute promyelocytic leukaemia
     Dosage: UNK
     Route: 065
  2. BUSULFAN [Suspect]
     Active Substance: BUSULFAN
     Indication: Bone marrow conditioning regimen
  3. BUSULFAN [Suspect]
     Active Substance: BUSULFAN
     Indication: Stem cell transplant
  4. BUSULFAN [Suspect]
     Active Substance: BUSULFAN
     Indication: Chemotherapy
  5. CARMUSTINE [Concomitant]
     Active Substance: CARMUSTINE
     Indication: Acute promyelocytic leukaemia
     Dosage: UNK
     Route: 065
  6. CARMUSTINE [Concomitant]
     Active Substance: CARMUSTINE
     Indication: Bone marrow conditioning regimen
  7. CARMUSTINE [Concomitant]
     Active Substance: CARMUSTINE
     Indication: Stem cell transplant
  8. CARMUSTINE [Concomitant]
     Active Substance: CARMUSTINE
     Indication: Chemotherapy
  9. ETOPOSIDE [Concomitant]
     Active Substance: ETOPOSIDE
     Indication: Stem cell transplant
     Dosage: UNK
     Route: 065
  10. ETOPOSIDE [Concomitant]
     Active Substance: ETOPOSIDE
     Indication: Bone marrow conditioning regimen
  11. ETOPOSIDE [Concomitant]
     Active Substance: ETOPOSIDE
     Indication: Acute promyelocytic leukaemia
  12. ETOPOSIDE [Concomitant]
     Active Substance: ETOPOSIDE
     Indication: Chemotherapy
  13. CYTARABINE [Concomitant]
     Active Substance: CYTARABINE
     Indication: Chemotherapy
     Dosage: UNK
     Route: 065
  14. CYTARABINE [Concomitant]
     Active Substance: CYTARABINE
     Indication: Acute promyelocytic leukaemia
  15. CYTARABINE [Concomitant]
     Active Substance: CYTARABINE
     Indication: Stem cell transplant
  16. CYTARABINE [Concomitant]
     Active Substance: CYTARABINE
     Indication: Bone marrow conditioning regimen

REACTIONS (4)
  - Coagulopathy [Unknown]
  - Venoocclusive liver disease [Recovered/Resolved]
  - Thrombocytopenia [Unknown]
  - Off label use [Unknown]
